FAERS Safety Report 8300717-2 (Version None)
Quarter: 2012Q1

REPORT INFORMATION
  Report Type: 
  Country: None (occurrence: None)
  Receive Date: 20120326
  Receipt Date: 20110629
  Transmission Date: 20120608
  Serious: Yes (Other)
  Sender: FDA-Public Use
  Company Number: PHHY2011US58162

PATIENT
  Age: 70 Year
  Sex: Female

DRUGS (5)
  1. FLEXERIL [Concomitant]
  2. ASPIRIN [Concomitant]
  3. ZOFRAN [Concomitant]
  4. TASIGNA [Suspect]
     Indication: CHRONIC MYELOID LEUKAEMIA
     Dosage: 150 MG
     Dates: start: 20110504, end: 20110519
  5. COMPAZINE [Concomitant]

REACTIONS (5)
  - HYPOAESTHESIA [None]
  - SPEECH DISORDER [None]
  - AMNESIA [None]
  - PARAESTHESIA [None]
  - DISORIENTATION [None]
